FAERS Safety Report 22039626 (Version 1)
Quarter: 2023Q1

REPORT INFORMATION
  Report Type: Spontaneous
  Country: CH (occurrence: CH)
  Receive Date: 20230227
  Receipt Date: 20230227
  Transmission Date: 20230417
  Serious: Yes (Hospitalization, Other)
  Sender: FDA-Public Use
  Company Number: CH-MYLANLABS-2022M1135930

PATIENT
  Sex: Female

DRUGS (3)
  1. XANAX [Suspect]
     Active Substance: ALPRAZOLAM
     Indication: Affective disorder
     Dosage: 2 MILLIGRAM, BID (DAILY 2 TIMES 2 MG 100 PIECES
     Route: 065
     Dates: start: 202003
  2. XANAX [Suspect]
     Active Substance: ALPRAZOLAM
     Indication: Affective disorder
     Dosage: 2 MILLIGRAM, BID (DAILY 2 TIMES 2 MG 100 PIECES, 30 PIECES)
     Route: 065
     Dates: start: 202003
  3. MIRTAZAPINE [Concomitant]
     Active Substance: MIRTAZAPINE
     Indication: Antidepressant therapy
     Dosage: 30 MILLIGRAM, QD
     Route: 065

REACTIONS (9)
  - Disorientation [Recovered/Resolved]
  - Overdose [Recovered/Resolved]
  - Confusional state [Recovered/Resolved]
  - Ataxia [Recovered/Resolved]
  - Off label use [Unknown]
  - Bradyphrenia [Unknown]
  - Blunted affect [Unknown]
  - Transaminases increased [Unknown]
  - Amnesia [Unknown]

NARRATIVE: CASE EVENT DATE: 20200301
